FAERS Safety Report 9414284 (Version 2)
Quarter: 2013Q3

REPORT INFORMATION
  Report Type: Spontaneous
  Country: CN (occurrence: CN)
  Receive Date: 20130723
  Receipt Date: 20130805
  Transmission Date: 20140515
  Serious: Yes (Hospitalization)
  Sender: FDA-Public Use
  Company Number: CN-MERCK-1307CHN010684

PATIENT
  Age: 62 Year
  Sex: Male
  Weight: 78 kg

DRUGS (1)
  1. SIMVASTATIN [Suspect]
     Indication: CORONARY ARTERY DISEASE
     Dosage: TOTAL DAILY DOSE 20 MG, QD
     Route: 048
     Dates: start: 20130623, end: 20130623

REACTIONS (1)
  - Dermatitis exfoliative [Recovering/Resolving]
